FAERS Safety Report 5968452-3 (Version None)
Quarter: 2008Q4

REPORT INFORMATION
  Report Type: 
  Country: None (occurrence: None)
  Receive Date: 20081119
  Receipt Date: 20080820
  Transmission Date: 20090506
  Serious: No
  Sender: FDA-Public Use
  Company Number: WAES 0805USA05063

PATIENT
  Age: 81 Year
  Sex: Female
  Weight: 75.7507 kg

DRUGS (10)
  1. JANUVIA [Suspect]
     Indication: TYPE 2 DIABETES MELLITUS
     Dosage: 100 MG/DAILY/PO ; 50 MG/DAILY/PO
     Route: 048
     Dates: start: 20080424
  2. COUMADIN [Concomitant]
  3. DIOVAN [Concomitant]
  4. TRIGLIDE [Concomitant]
  5. ZOCOR [Concomitant]
  6. AMLODIPINE BESYLATE [Concomitant]
  7. CYANOCOBALAMIN [Concomitant]
  8. FUROSEMIDE [Concomitant]
  9. INSULIN [Concomitant]
  10. METOPROLOL TARTRATE [Concomitant]

REACTIONS (3)
  - BLOOD CREATININE INCREASED [None]
  - BLOOD GLUCOSE INCREASED [None]
  - WRONG TECHNIQUE IN DRUG USAGE PROCESS [None]
